FAERS Safety Report 11246370 (Version 1)
Quarter: 2015Q3

REPORT INFORMATION
  Report Type: Spontaneous
  Country: BR (occurrence: BR)
  Receive Date: 20150708
  Receipt Date: 20150708
  Transmission Date: 20151125
  Serious: Yes (Other)
  Sender: FDA-Public Use
  Company Number: BR-PFIZER INC-2013160482

PATIENT
  Age: 68 Year
  Sex: Male
  Weight: 58.5 kg

DRUGS (1)
  1. SUTENT [Suspect]
     Active Substance: SUNITINIB MALATE
     Indication: RENAL CELL CARCINOMA
     Dosage: 50 MG, CYCLIC (2 PER 1)
     Route: 048
     Dates: start: 20130401, end: 2015

REACTIONS (14)
  - Mouth injury [Unknown]
  - Hypersensitivity [Unknown]
  - Fatigue [Unknown]
  - Abdominal pain [Recovering/Resolving]
  - Diarrhoea [Unknown]
  - Tooth disorder [Unknown]
  - Cataract [Unknown]
  - Flank pain [Unknown]
  - Mass [Unknown]
  - Feeling abnormal [Unknown]
  - Skin hypertrophy [Unknown]
  - Ageusia [Unknown]
  - Erythema [Unknown]
  - Secretion discharge [Unknown]

NARRATIVE: CASE EVENT DATE: 20140813
